APPROVED DRUG PRODUCT: NEO TECT KIT
Active Ingredient: TECHNETIUM TC-99M DEPREOTIDE
Strength: N/A **Federal Register determination that product was not discontinued or withdrawn for safety or effectiveness reasons**
Dosage Form/Route: INJECTABLE;INJECTION
Application: N021012 | Product #001
Applicant: CIS BIO INTERNATIONAL SA
Approved: Aug 3, 1999 | RLD: No | RS: No | Type: DISCN